FAERS Safety Report 10755028 (Version 1)
Quarter: 2015Q1

REPORT INFORMATION
  Report Type: Spontaneous
  Country: US (occurrence: None)
  Receive Date: 20150130
  Receipt Date: 20150130
  Transmission Date: 20150721
  Serious: Yes (Other)
  Sender: FDA-Public Use
  Company Number: None

PATIENT
  Age: 57 Year
  Sex: Female
  Weight: 45.36 kg

DRUGS (2)
  1. CIPROFLOXACIN. [Suspect]
     Active Substance: CIPROFLOXACIN
     Indication: NEPHROLITHIASIS
     Dosage: 1 PIL TWICE DAILY TAKEN BY MOUTH
     Route: 048
     Dates: start: 20150109, end: 20150114
  2. CIPROFLOXACIN. [Suspect]
     Active Substance: CIPROFLOXACIN
     Indication: URINARY TRACT INFECTION
     Dosage: 1 PIL TWICE DAILY TAKEN BY MOUTH
     Route: 048
     Dates: start: 20150109, end: 20150114

REACTIONS (10)
  - Paraesthesia [None]
  - Dizziness [None]
  - Tendon pain [None]
  - Head discomfort [None]
  - Panic reaction [None]
  - Diarrhoea [None]
  - Thinking abnormal [None]
  - Fear [None]
  - Nausea [None]
  - Feeling abnormal [None]

NARRATIVE: CASE EVENT DATE: 20150116
